FAERS Safety Report 9645339 (Version 1)
Quarter: 2013Q4

REPORT INFORMATION
  Report Type: Spontaneous
  Country: NL (occurrence: NL)
  Receive Date: 20131025
  Receipt Date: 20131025
  Transmission Date: 20140711
  Serious: Yes (Life-Threatening)
  Sender: FDA-Public Use
  Company Number: NL-BAYER-2013-126894

PATIENT
  Age: 29 Year
  Sex: Female
  Weight: 62 kg

DRUGS (4)
  1. NIFEDIPINE [Suspect]
     Indication: HYPERTENSION
     Dosage: 30 MG, UNK, 1 TIMES PER 1 DAYS
     Dates: start: 20131004, end: 20131004
  2. MAGNESIUM SULFATE [Concomitant]
     Dosage: 1 DF, UNK
  3. KETENSIN [Concomitant]
     Dosage: 1 DF, UNK
  4. LABETALOL [Concomitant]
     Dosage: 100 MG, TID

REACTIONS (2)
  - Pulmonary oedema [Recovered/Resolved]
  - Respiratory failure [Recovered/Resolved]
